FAERS Safety Report 8312226-5 (Version None)
Quarter: 2012Q2

REPORT INFORMATION
  Report Type: 
  Country: None (occurrence: None)
  Receive Date: 20120425
  Receipt Date: 20120425
  Transmission Date: 20120825
  Serious: Yes (Other)
  Sender: FDA-Public Use
  Company Number: CHPA2012ES008682

PATIENT
  Age: 1 Year
  Sex: Male

DRUGS (3)
  1. OTRIVIN [Suspect]
     Indication: OTITIS MEDIA ACUTE
     Dosage: UNK, UNK
     Route: 065
     Dates: start: 20120214, end: 20120214
  2. BUDESONIDE [Concomitant]
     Dosage: UNK, UNK
     Dates: start: 20120213
  3. AMBROXOL [Concomitant]
     Dosage: UNK, UNK
     Dates: start: 20120213

REACTIONS (2)
  - INSOMNIA [None]
  - AGITATION [None]
